FAERS Safety Report 13835062 (Version 1)
Quarter: 2017Q3

REPORT INFORMATION
  Report Type: Spontaneous
  Country: BR (occurrence: BR)
  Receive Date: 20170804
  Receipt Date: 20170804
  Transmission Date: 20171127
  Serious: Yes (Other)
  Sender: FDA-Public Use
  Company Number: BR-ROCHE-1971842

PATIENT
  Sex: Male

DRUGS (6)
  1. RIVOTRIL [Suspect]
     Active Substance: CLONAZEPAM
     Indication: ABDOMINAL PAIN
     Route: 065
  2. RIVOTRIL [Suspect]
     Active Substance: CLONAZEPAM
     Indication: GASTRITIS
     Route: 065
  3. OLMETEC HCT [Concomitant]
     Active Substance: HYDROCHLOROTHIAZIDE\OLMESARTAN MEDOXOMIL
     Indication: BLOOD PRESSURE ABNORMAL
     Route: 065
  4. RIVOTRIL [Suspect]
     Active Substance: CLONAZEPAM
     Indication: INSOMNIA
     Route: 065
     Dates: start: 2014
  5. RIVOTRIL [Suspect]
     Active Substance: CLONAZEPAM
     Route: 065
  6. RIVOTRIL [Suspect]
     Active Substance: CLONAZEPAM
     Route: 065

REACTIONS (17)
  - Heart rate increased [Unknown]
  - Pruritus [Not Recovered/Not Resolved]
  - Urine flow decreased [Unknown]
  - Dyspnoea [Unknown]
  - Respiratory depression [Unknown]
  - Irritability [Unknown]
  - Abdominal pain [Unknown]
  - Skin hypertrophy [Not Recovered/Not Resolved]
  - Nervousness [Unknown]
  - Hypertensive crisis [Unknown]
  - Insomnia [Unknown]
  - Nightmare [Unknown]
  - Tinnitus [Unknown]
  - Sluggishness [Unknown]
  - Grip strength decreased [Unknown]
  - Intentional product use issue [Unknown]
  - Aphasia [Unknown]
